FAERS Safety Report 9337750 (Version 3)
Quarter: 2013Q3

REPORT INFORMATION
  Report Type: Spontaneous
  Country: JP (occurrence: JP)
  Receive Date: 20130607
  Receipt Date: 20130723
  Transmission Date: 20140515
  Serious: Yes (Hospitalization)
  Sender: FDA-Public Use
  Company Number: JP-B.I. PHARMACEUTICALS,INC./RIDGEFIELD-2013-BI-16125NB

PATIENT
  Sex: 0

DRUGS (2)
  1. PRADAXA [Suspect]
     Dosage: 220 MG
     Route: 048
  2. WARFARIN [Concomitant]
     Route: 048

REACTIONS (2)
  - Asthenia [Unknown]
  - Renal impairment [Unknown]
